FAERS Safety Report 9886221 (Version 2)
Quarter: 2014Q3

REPORT INFORMATION
  Report Type: Spontaneous
  Country: US (occurrence: US)
  Receive Date: 20140210
  Receipt Date: 20140818
  Transmission Date: 20150326
  Serious: Yes (Death, Other)
  Sender: FDA-Public Use
  Company Number: US-GILEAD-2014-0094001

PATIENT
  Age: 23 Year
  Sex: Female

DRUGS (1)
  1. CAYSTON [Suspect]
     Active Substance: AZTREONAM
     Indication: CYSTIC FIBROSIS
     Dosage: 89 ML, UNK
     Route: 055
     Dates: start: 20110415, end: 20131107

REACTIONS (1)
  - Death [Fatal]

NARRATIVE: CASE EVENT DATE: 201401
